FAERS Safety Report 5621594-4 (Version None)
Quarter: 2008Q1

REPORT INFORMATION
  Report Type: 
  Country: None (occurrence: None)
  Receive Date: 20080130
  Receipt Date: 20080122
  Transmission Date: 20080703
  Serious: Yes (Death, Hospitalization)
  Sender: FDA-Public Use
  Company Number: WAES 0801USA04247

PATIENT
  Age: 68 Year
  Sex: Female
  Weight: 74.8435 kg

DRUGS (19)
  1. DECADRON [Suspect]
     Dosage: PO
     Route: 048
  2. LONAFARNIB 100 MG; LONAFARNIB 50 MG [Suspect]
     Indication: HEPATIC CANCER METASTATIC
     Dosage: 100 MG/BID/PO; 50 MG BID PO
     Route: 048
     Dates: start: 20070809, end: 20070913
  3. DOCETAXEL [Suspect]
     Indication: HEPATIC CANCER METASTATIC
     Dosage: 36 MG/M [2]/WKY/IV
     Route: 042
     Dates: start: 20070904, end: 20070904
  4. CELEBREX [Concomitant]
  5. CENTRUM SILVER [Concomitant]
  6. DETROL LA [Concomitant]
  7. DIOVAN [Concomitant]
  8. GLUCOPHAGE [Concomitant]
  9. LIPITOR [Concomitant]
  10. PEPCID [Concomitant]
  11. URISED [Concomitant]
  12. [THERAPY UNSPECIFIED] [Concomitant]
  13. ASPIRIN [Concomitant]
  14. CIPROFLOXACIN [Concomitant]
  15. INSULIN [Concomitant]
  16. MORPHINE [Concomitant]
  17. NITROFURANTOIN [Concomitant]
  18. OXYCODONE HCL [Concomitant]
  19. VITAMIN D [Concomitant]

REACTIONS (9)
  - ACCIDENTAL OVERDOSE [None]
  - BLOOD GLUCOSE INCREASED [None]
  - CONFUSIONAL STATE [None]
  - DIABETIC KETOACIDOSIS [None]
  - FUNGAL INFECTION [None]
  - GENERAL PHYSICAL HEALTH DETERIORATION [None]
  - NEUTROPENIA [None]
  - TREATMENT NONCOMPLIANCE [None]
  - UROSEPSIS [None]
